FAERS Safety Report 9464645 (Version 3)
Quarter: 2013Q3

REPORT INFORMATION
  Report Type: Spontaneous
  Country: US (occurrence: US)
  Receive Date: 20130819
  Receipt Date: 20130911
  Transmission Date: 20140515
  Serious: Yes (Other)
  Sender: FDA-Public Use
  Company Number: US-PFIZER INC-2013237173

PATIENT
  Age: 56 Year
  Sex: Female
  Weight: 109 kg

DRUGS (3)
  1. CELEBREX [Suspect]
     Indication: ARTHRITIS
     Dosage: 100 MG UNKNOWN FREQUENCY
  2. MELOXICAM [Suspect]
     Indication: ARTHRITIS
     Dosage: UNK
  3. CALAN SR [Suspect]
     Indication: HYPERTENSION
     Dosage: 240 MG UNKNOWN FREQUENCY

REACTIONS (3)
  - Abasia [Unknown]
  - Drug ineffective [Unknown]
  - Arthropathy [Unknown]
